FAERS Safety Report 20508932 (Version 2)
Quarter: 2022Q1

REPORT INFORMATION
  Report Type: Spontaneous
  Country: JP (occurrence: JP)
  Receive Date: 20220223
  Receipt Date: 20220315
  Transmission Date: 20220423
  Serious: Yes (Death, Hospitalization, Other)
  Sender: FDA-Public Use
  Company Number: JP-MSD-M2022-06795

PATIENT
  Age: 88 Year
  Sex: Male
  Weight: 68 kg

DRUGS (5)
  1. MOLNUPIRAVIR [Suspect]
     Active Substance: MOLNUPIRAVIR
     Indication: COVID-19 treatment
     Dosage: 800 MILLIGRAM, BID
     Route: 048
     Dates: start: 20220213, end: 20220215
  2. CANDESARTAN CILEXETIL [Concomitant]
     Active Substance: CANDESARTAN CILEXETIL
     Indication: Hypertension
     Dosage: 4 MILLIGRAM, QD
     Route: 048
     Dates: end: 20220215
  3. AMLODIPINE BESYLATE [Concomitant]
     Active Substance: AMLODIPINE BESYLATE
     Indication: Hypertension
     Dosage: 5 MILLIGRAM, QD
     Route: 048
     Dates: end: 20220215
  4. EDOXABAN TOSYLATE [Concomitant]
     Active Substance: EDOXABAN TOSYLATE
     Indication: Atrial fibrillation
     Dosage: 60 MILLIGRAM, QD
     Route: 048
     Dates: end: 20220215
  5. MAGNESIUM OXIDE [Concomitant]
     Active Substance: MAGNESIUM OXIDE
     Indication: Constipation
     Dosage: 250 MILLIGRAM, QD
     Route: 048
     Dates: end: 20220215

REACTIONS (5)
  - Malaise [Unknown]
  - Decreased appetite [Unknown]
  - Respiratory failure [Fatal]
  - Cardiomegaly [Unknown]
  - Atelectasis [Unknown]

NARRATIVE: CASE EVENT DATE: 20220214
